FAERS Safety Report 8284050-3 (Version None)
Quarter: 2012Q2

REPORT INFORMATION
  Report Type: 
  Country: None (occurrence: None)
  Receive Date: 20120413
  Receipt Date: 20110728
  Transmission Date: 20120825
  Serious: No
  Sender: FDA-Public Use
  Company Number: US-ASTRAZENECA-2010SE49955

PATIENT
  Age: 54 Year
  Sex: Male

DRUGS (1)
  1. NEXIUM [Suspect]
     Dosage: DAILY
     Route: 048

REACTIONS (21)
  - CHEST DISCOMFORT [None]
  - INFECTION [None]
  - HEAD INJURY [None]
  - APHASIA [None]
  - VOMITING [None]
  - DRUG DOSE OMISSION [None]
  - LIVER DISORDER [None]
  - JOINT SWELLING [None]
  - PARAESTHESIA [None]
  - FALL [None]
  - PAIN [None]
  - MEMORY IMPAIRMENT [None]
  - ABDOMINAL DISTENSION [None]
  - CHEST PAIN [None]
  - HYPERTENSION [None]
  - PAIN IN EXTREMITY [None]
  - ARTERIAL OCCLUSIVE DISEASE [None]
  - FEELING HOT [None]
  - HEPATITIS C [None]
  - SPEECH DISORDER [None]
  - OEDEMA PERIPHERAL [None]
